FAERS Safety Report 13456845 (Version 1)
Quarter: 2017Q2

REPORT INFORMATION
  Report Type: Spontaneous
  Country: TR (occurrence: TR)
  Receive Date: 20170419
  Receipt Date: 20170419
  Transmission Date: 20170830
  Serious: Yes (Hospitalization)
  Sender: FDA-Public Use
  Company Number: TR-JNJFOC-20170415801

PATIENT
  Age: 67 Year
  Sex: Male

DRUGS (6)
  1. IMBRUVICA [Suspect]
     Active Substance: IBRUTINIB
     Indication: MANTLE CELL LYMPHOMA
     Route: 048
     Dates: start: 20170227, end: 20170312
  2. IMBRUVICA [Suspect]
     Active Substance: IBRUTINIB
     Indication: MANTLE CELL LYMPHOMA
     Route: 048
     Dates: start: 20161201, end: 20170210
  3. IMBRUVICA [Suspect]
     Active Substance: IBRUTINIB
     Indication: MANTLE CELL LYMPHOMA
     Route: 048
     Dates: start: 20170313
  4. LYRICA [Concomitant]
     Active Substance: PREGABALIN
     Indication: UNEVALUABLE EVENT
  5. TENOVIRAL [Concomitant]
     Indication: UNEVALUABLE EVENT
  6. CEDRINA [Concomitant]
     Indication: UNEVALUABLE EVENT

REACTIONS (3)
  - Incorrect dose administered [Unknown]
  - Gastrointestinal haemorrhage [Recovered/Resolved]
  - Off label use [Unknown]

NARRATIVE: CASE EVENT DATE: 20161201
